FAERS Safety Report 20976613 (Version 3)
Quarter: 2022Q3

REPORT INFORMATION
  Report Type: Report from Study
  Country: BR (occurrence: BR)
  Receive Date: 20220617
  Receipt Date: 20220719
  Transmission Date: 20221027
  Serious: Yes (Other)
  Sender: FDA-Public Use
  Company Number: BR-JNJFOC-20220626832

PATIENT
  Sex: Female
  Weight: 74 kg

DRUGS (1)
  1. INFLIXIMAB [Suspect]
     Active Substance: INFLIXIMAB
     Indication: Rheumatoid arthritis
     Dosage: TREATMENT START DATE: 1 YEAR AND A HALF AGO
     Route: 041

REACTIONS (3)
  - Disease complication [Recovering/Resolving]
  - Drug ineffective [Unknown]
  - Off label use [Unknown]
